FAERS Safety Report 25382133 (Version 2)
Quarter: 2025Q4

REPORT INFORMATION
  Report Type: Spontaneous
  Country: US (occurrence: US)
  Receive Date: 20250531
  Receipt Date: 20251104
  Transmission Date: 20260118
  Serious: No
  Sender: CELLTRION
  Company Number: US-CELLTRION INC.-2025US013644

PATIENT

DRUGS (2)
  1. ZYMFENTRA [Suspect]
     Active Substance: INFLIXIMAB-DYYB
     Indication: Colitis ulcerative
     Dosage: 120 MG, ONCE EVERY OTHER WEEK
     Route: 058
  2. MESALAMINE [Concomitant]
     Active Substance: MESALAMINE

REACTIONS (4)
  - Drug delivery system malfunction [Recovered/Resolved]
  - Needle issue [Unknown]
  - Accidental exposure to product [Recovered/Resolved]
  - Exposure via skin contact [Recovered/Resolved]

NARRATIVE: CASE EVENT DATE: 20250502
